FAERS Safety Report 5228360-2 (Version None)
Quarter: 2007Q1

REPORT INFORMATION
  Report Type: 
  Country: None (occurrence: None)
  Receive Date: 20070205
  Receipt Date: 20070126
  Transmission Date: 20070707
  Serious: Yes (Hospitalization)
  Sender: FDA-Public Use
  Company Number: US-JNJFOC-20070107594

PATIENT
  Sex: Female
  Weight: 136.08 kg

DRUGS (9)
  1. DURAGESIC-100 [Suspect]
     Route: 062
  2. DURAGESIC-100 [Suspect]
     Indication: PAIN
     Route: 062
  3. ZOLOFT [Concomitant]
     Indication: DEPRESSION
     Route: 048
  4. HALCION [Concomitant]
     Indication: INSOMNIA
     Route: 048
  5. DULCOLAX [Concomitant]
     Indication: CONSTIPATION
     Route: 054
  6. RANITIDINE [Concomitant]
     Indication: ULCER
     Route: 048
  7. LISINOPRIL [Concomitant]
     Indication: HYPERTENSION
     Route: 048
  8. ATENOLOL [Concomitant]
     Indication: HYPERTENSION
     Route: 048
  9. PREMARIN [Concomitant]
     Indication: HOT FLUSH
     Route: 048

REACTIONS (4)
  - OEDEMA PERIPHERAL [None]
  - PAIN IN EXTREMITY [None]
  - SCAR [None]
  - SKIN INFECTION [None]
